FAERS Safety Report 22369403 (Version 3)
Quarter: 2023Q4

REPORT INFORMATION
  Report Type: Report from Study
  Country: US (occurrence: US)
  Receive Date: 20230526
  Receipt Date: 20231124
  Transmission Date: 20240110
  Serious: Yes (Hospitalization, Other)
  Sender: FDA-Public Use
  Company Number: US-ABBVIE-5178732

PATIENT
  Sex: Male

DRUGS (1)
  1. SKYRIZI [Suspect]
     Active Substance: RISANKIZUMAB-RZAA
     Indication: Psoriasis
     Route: 058
     Dates: start: 20221020

REACTIONS (12)
  - Staphylococcal infection [Unknown]
  - Pruritus [Recovering/Resolving]
  - Wound infection staphylococcal [Unknown]
  - Gout [Recovering/Resolving]
  - Skin exfoliation [Recovering/Resolving]
  - Arthritis [Recovering/Resolving]
  - Skin haemorrhage [Not Recovered/Not Resolved]
  - Therapeutic product effect incomplete [Unknown]
  - Immunodeficiency [Unknown]
  - Osteoarthritis [Unknown]
  - Gait inability [Recovering/Resolving]
  - Thrombosis [Recovering/Resolving]
